FAERS Safety Report 10682668 (Version 1)
Quarter: 2014Q4

REPORT INFORMATION
  Report Type: Spontaneous
  Country: FR (occurrence: FR)
  Receive Date: 20141230
  Receipt Date: 20141230
  Transmission Date: 20150529
  Serious: Yes (Life-Threatening, Hospitalization, Other)
  Sender: FDA-Public Use
  Company Number: FR-PFIZER INC-2014356825

PATIENT
  Age: 31 Year
  Sex: Female

DRUGS (9)
  1. DUROGESIC [Concomitant]
     Active Substance: FENTANYL
  2. UN-ALFA [Concomitant]
  3. PRIMPERAN [Suspect]
     Active Substance: METOCLOPRAMIDE HYDROCHLORIDE
     Indication: VOMITING
     Dosage: 10 MG, 3X/DAY
     Route: 048
     Dates: start: 20140829, end: 20141009
  4. CORTANCYL [Concomitant]
     Active Substance: PREDNISONE
     Dosage: 25 MG, DAILY
  5. TRAMADOL [Concomitant]
     Active Substance: TRAMADOL
     Dosage: UNK
  6. INEXIUM [Concomitant]
     Active Substance: ESOMEPRAZOLE
     Dosage: 40 MG, DAILY
  7. LYRICA [Suspect]
     Active Substance: PREGABALIN
     Dosage: 275 MG, 2X/DAY
     Route: 048
     Dates: start: 2014, end: 20141009
  8. VITAMIN A [Concomitant]
     Active Substance: VITAMIN A
  9. ABSTRAL [Concomitant]
     Active Substance: FENTANYL CITRATE

REACTIONS (8)
  - Tremor [Recovered/Resolved]
  - Prescribed overdose [Unknown]
  - Multi-organ failure [Recovered/Resolved]
  - Blood creatine phosphokinase increased [Recovered/Resolved]
  - Drug screen positive [Unknown]
  - Intentional product misuse [Unknown]
  - Lactic acidosis [Recovered/Resolved]
  - Diarrhoea [Unknown]

NARRATIVE: CASE EVENT DATE: 20140829
